FAERS Safety Report 15595452 (Version 4)
Quarter: 2018Q4

REPORT INFORMATION
  Report Type: Spontaneous
  Country: US (occurrence: US)
  Receive Date: 20181107
  Receipt Date: 20181210
  Transmission Date: 20190205
  Serious: No
  Sender: FDA-Public Use
  Company Number: US-TEVA-2018-US-973132

PATIENT
  Age: 69 Year
  Sex: Female

DRUGS (12)
  1. LISINOPRIL. [Concomitant]
     Active Substance: LISINOPRIL
     Route: 065
  2. LORATADINE. [Concomitant]
     Active Substance: LORATADINE
     Route: 065
  3. METOCLOPRAMIDE. [Concomitant]
     Active Substance: METOCLOPRAMIDE
     Indication: IMPAIRED GASTRIC EMPTYING
     Route: 065
  4. ELIQUIS [Concomitant]
     Active Substance: APIXABAN
     Indication: CARDIOVASCULAR DISORDER
     Route: 065
  5. AJOVY [Suspect]
     Active Substance: FREMANEZUMAB-VFRM
     Route: 058
     Dates: start: 20181015
  6. CLONAZEPAM. [Concomitant]
     Active Substance: CLONAZEPAM
     Indication: ANXIETY
     Route: 065
  7. LIPITOR [Concomitant]
     Active Substance: ATORVASTATIN CALCIUM
     Indication: CARDIOVASCULAR DISORDER
     Route: 065
  8. NORVASC [Concomitant]
     Active Substance: AMLODIPINE BESYLATE
     Indication: CARDIOVASCULAR DISORDER
     Route: 065
  9. RANITIDINE. [Concomitant]
     Active Substance: RANITIDINE
     Route: 065
  10. POTASSIUM [Concomitant]
     Active Substance: POTASSIUM
     Indication: CARDIOVASCULAR DISORDER
     Route: 065
  11. EVISTA [Concomitant]
     Active Substance: RALOXIFENE HYDROCHLORIDE
     Route: 065
  12. NADOLOL. [Concomitant]
     Active Substance: NADOLOL
     Indication: CARDIOVASCULAR DISORDER
     Route: 065

REACTIONS (2)
  - Drug ineffective [Unknown]
  - Headache [Recovered/Resolved]

NARRATIVE: CASE EVENT DATE: 20181025
